FAERS Safety Report 5974185-X (Version None)
Quarter: 2008Q4

REPORT INFORMATION
  Report Type: 
  Country: None (occurrence: None)
  Receive Date: 20081125
  Receipt Date: 20081117
  Transmission Date: 20090506
  Serious: Yes (Hospitalization)
  Sender: FDA-Public Use
  Company Number: 2008AL011824

PATIENT
  Age: 84 Year
  Sex: Female

DRUGS (1)
  1. DICLOFENAC SODIUM EXTENDED-RELEASE TABLETS, 100 MG (PUREPAC) (DICLOFEN [Suspect]
     Indication: CHEST INJURY
     Dosage: PO
     Route: 048

REACTIONS (12)
  - AGRANULOCYTOSIS [None]
  - BLOOD PRESSURE SYSTOLIC DECREASED [None]
  - BODY TEMPERATURE INCREASED [None]
  - CULTURE TISSUE SPECIMEN POSITIVE [None]
  - ECTHYMA [None]
  - GANGRENE [None]
  - HEART RATE INCREASED [None]
  - LEUKOCYTOCLASTIC VASCULITIS [None]
  - MORGANELLA INFECTION [None]
  - OXYGEN SATURATION DECREASED [None]
  - SYSTEMIC INFLAMMATORY RESPONSE SYNDROME [None]
  - VASCULITIS NECROTISING [None]
